FAERS Safety Report 4269357-9 (Version None)
Quarter: 2004Q1

REPORT INFORMATION
  Report Type: 
  Country: None (occurrence: None)
  Receive Date: 20040113
  Receipt Date: 20031210
  Transmission Date: 20041129
  Serious: Yes (Death, Other)
  Sender: FDA-Public Use
  Company Number: PHBS2003JP14011

PATIENT
  Age: 84 Year
  Sex: Female

DRUGS (6)
  1. VOLTAREN [Suspect]
     Indication: RHEUMATOID ARTHRITIS
     Dosage: 50 MG/D
     Route: 054
     Dates: start: 20031115, end: 20031122
  2. LOXONIN [Concomitant]
     Indication: RHEUMATOID ARTHRITIS
  3. PREDONINE [Concomitant]
     Indication: RHEUMATOID ARTHRITIS
     Dosage: 10 MG/DAY
     Route: 048
  4. FERROMIA [Concomitant]
     Indication: ANAEMIA
     Dosage: 100 MG/DAY
     Route: 048
  5. ALFAROL [Concomitant]
     Indication: OSTEOPOROSIS
     Dosage: 1 UG/DAY
     Route: 048
  6. GASTER D [Concomitant]
     Indication: GASTRIC ULCER
     Dosage: 20 MG/DAY
     Route: 048

REACTIONS (2)
  - SYSTEMIC INFLAMMATORY RESPONSE SYNDROME [None]
  - THROMBOCYTOPENIA [None]
